FAERS Safety Report 8965129 (Version 3)
Quarter: 2013Q3

REPORT INFORMATION
  Report Type: Spontaneous
  Country: US (occurrence: US)
  Receive Date: 20121213
  Receipt Date: 20130717
  Transmission Date: 20140515
  Serious: Yes (Other)
  Sender: FDA-Public Use
  Company Number: US-BRISTOL-MYERS SQUIBB COMPANY-17179409

PATIENT
  Sex: Female

DRUGS (1)
  1. YERVOY [Suspect]
     Dosage: NO OF DOSES-3

REACTIONS (3)
  - Liver function test abnormal [Unknown]
  - Gastrointestinal ulcer [Unknown]
  - Gastrooesophageal reflux disease [Unknown]
